FAERS Safety Report 6292456-7 (Version None)
Quarter: 2009Q3

REPORT INFORMATION
  Report Type: 
  Country: None (occurrence: None)
  Receive Date: 20090731
  Receipt Date: 20090720
  Transmission Date: 20100115
  Serious: Yes (Death)
  Sender: FDA-Public Use
  Company Number: FR-PFIZER INC-2009242468

PATIENT
  Age: 39 Year

DRUGS (4)
  1. DOXORUBICIN HCL [Suspect]
     Dosage: 60 MG, MONTHLY
     Route: 042
     Dates: start: 19880101
  2. ONCOVIN [Suspect]
     Dosage: 1.5 MG, MONTHLY
     Route: 042
     Dates: start: 19880101
  3. ENDOXAN [Suspect]
     Dosage: 1 G
     Route: 042
     Dates: start: 19880101
  4. SOLUPRED [Suspect]
     Dosage: 20 MG, 6X/MONTH
     Route: 048
     Dates: start: 19880101

REACTIONS (6)
  - CACHEXIA [None]
  - CONVULSION [None]
  - HYPOCALCAEMIA [None]
  - MALABSORPTION [None]
  - MALNUTRITION [None]
  - VITAMIN D DEFICIENCY [None]
